FAERS Safety Report 17129562 (Version 8)
Quarter: 2020Q4

REPORT INFORMATION
  Report Type: Spontaneous
  Country: US (occurrence: US)
  Receive Date: 20191209
  Receipt Date: 20201110
  Transmission Date: 20210113
  Serious: Yes (Other)
  Sender: FDA-Public Use
  Company Number: US-PFIZER INC-2019527146

PATIENT
  Age: 60 Year
  Sex: Female
  Weight: 88.45 kg

DRUGS (3)
  1. PROTONIX [Suspect]
     Active Substance: PANTOPRAZOLE SODIUM
     Indication: GASTROOESOPHAGEAL REFLUX DISEASE
     Dosage: 40 MG, 2X/DAY
     Route: 048
     Dates: start: 1989
  2. ARTHROTEC [Suspect]
     Active Substance: DICLOFENAC SODIUM\MISOPROSTOL
     Indication: BACK PAIN
     Dosage: UNK, 2X/DAY (1 IN THE MORNING AND 1 AT NIGHT)
     Route: 048
     Dates: start: 1989
  3. ARTHROTEC [Suspect]
     Active Substance: DICLOFENAC SODIUM\MISOPROSTOL
     Indication: MYALGIA

REACTIONS (7)
  - Pneumonia [Unknown]
  - Bronchiectasis [Unknown]
  - Pneumonia aspiration [Unknown]
  - Weight increased [Unknown]
  - Immunodeficiency [Recovering/Resolving]
  - Asthma [Unknown]
  - Visual impairment [Unknown]

NARRATIVE: CASE EVENT DATE: 2008
